FAERS Safety Report 4362232-0 (Version None)
Quarter: 2004Q2

REPORT INFORMATION
  Report Type: 
  Country: None (occurrence: None)
  Receive Date: 20040518
  Receipt Date: 20040513
  Transmission Date: 20050107
  Serious: Yes (Hospitalization)
  Sender: FDA-Public Use
  Company Number: 2004213262US

PATIENT
  Age: 78 Year
  Sex: Female

DRUGS (1)
  1. CELEBREX [Suspect]
     Indication: HIP SURGERY
     Dosage: 200 MG

REACTIONS (5)
  - ACCIDENT [None]
  - DRUG INEFFECTIVE [None]
  - FALL [None]
  - FRACTURE [None]
  - WALKING AID USER [None]
